FAERS Safety Report 10088027 (Version 2)
Quarter: 2014Q2

REPORT INFORMATION
  Report Type: Spontaneous
  Country: JP (occurrence: JP)
  Receive Date: 20140420
  Receipt Date: 20140420
  Transmission Date: 20141212
  Serious: Yes (Hospitalization)
  Sender: FDA-Public Use
  Company Number: PHHY2014JP045364

PATIENT
  Sex: Female

DRUGS (3)
  1. VOLTAREN [Suspect]
     Dosage: UNK UKN, PRN
     Route: 048
  2. TERIBONE [Suspect]
     Dosage: UNK UKN, UNK
  3. VOLTAREN [Concomitant]
     Dosage: UNK UKN, UNK
     Route: 054

REACTIONS (1)
  - Hypoglycaemia [Unknown]
